FAERS Safety Report 7379923-X (Version None)
Quarter: 2011Q1

REPORT INFORMATION
  Report Type: 
  Country: None (occurrence: None)
  Receive Date: 20110329
  Receipt Date: 20110315
  Transmission Date: 20110831
  Serious: Yes (Other)
  Sender: FDA-Public Use
  Company Number: PHHY2010BR71283

PATIENT
  Sex: Female

DRUGS (2)
  1. DIOVAN [Suspect]
     Dosage: 160 MG, TWO TABLETS DAILY
  2. DIOVAN [Suspect]
     Indication: HYPERTENSION
     Dosage: 80 MG, ONE TABLET, DAILY

REACTIONS (1)
  - THYROID NEOPLASM [None]
